FAERS Safety Report 23546836 (Version 3)
Quarter: 2024Q2

REPORT INFORMATION
  Report Type: Spontaneous
  Country: US (occurrence: US)
  Receive Date: 20240221
  Receipt Date: 20240405
  Transmission Date: 20240716
  Serious: No
  Sender: FDA-Public Use
  Company Number: US-Blueprint Medicines Corporation-2388

PATIENT
  Sex: Male

DRUGS (3)
  1. AYVAKIT [Suspect]
     Active Substance: AVAPRITINIB
     Indication: Haematopoietic neoplasm
     Route: 065
  2. AYVAKIT [Suspect]
     Active Substance: AVAPRITINIB
     Indication: Advanced systemic mastocytosis
     Route: 048
     Dates: start: 20230323
  3. AYVAKIT [Suspect]
     Active Substance: AVAPRITINIB
     Dosage: TAKING IT MON-FRIDAY NOW AND OFF ON THE WEEKENDS
     Route: 065

REACTIONS (7)
  - Flatulence [Not Recovered/Not Resolved]
  - Abdominal pain upper [Not Recovered/Not Resolved]
  - Adverse drug reaction [Not Recovered/Not Resolved]
  - Taste disorder [Unknown]
  - Appetite disorder [Unknown]
  - Diarrhoea [Not Recovered/Not Resolved]
  - Intentional product misuse [Unknown]
